FAERS Safety Report 9797185 (Version 1)
Quarter: 2014Q1

REPORT INFORMATION
  Report Type: Report from Study
  Country: JP (occurrence: JP)
  Receive Date: 20140106
  Receipt Date: 20140106
  Transmission Date: 20141002
  Serious: Yes (Death, Other)
  Sender: FDA-Public Use
  Company Number: JP-ROCHE-1327174

PATIENT
  Sex: 0

DRUGS (1)
  1. TOCILIZUMAB [Suspect]
     Indication: CASTLEMAN^S DISEASE
     Route: 065

REACTIONS (5)
  - Pancreatic carcinoma [Fatal]
  - Leukaemia [Fatal]
  - Drug ineffective [Unknown]
  - Infection [Unknown]
  - Hypersensitivity [Unknown]
